FAERS Safety Report 5491274-7 (Version None)
Quarter: 2007Q4

REPORT INFORMATION
  Report Type: 
  Country: None (occurrence: None)
  Receive Date: 20071019
  Receipt Date: 20071009
  Transmission Date: 20080405
  Serious: Yes (Other)
  Sender: FDA-Public Use
  Company Number: CI-GILEAD-2007-0013784

PATIENT
  Sex: Female
  Weight: 55 kg

DRUGS (7)
  1. TRUVADA [Suspect]
     Indication: HIV INFECTION
     Dates: start: 20061219, end: 20061225
  2. TRUVADA [Suspect]
     Dates: start: 20061218, end: 20061218
  3. ZIDOVUDINE [Concomitant]
     Indication: HIV INFECTION
     Dates: start: 20061218, end: 20061218
  4. FEFOL [Concomitant]
     Indication: ANAEMIA
     Dates: start: 20060917, end: 20061218
  5. VITAMIN CAP [Concomitant]
     Indication: VITAMIN SUPPLEMENTATION
     Dates: start: 20060917, end: 20061218
  6. OXYTOCIN [Concomitant]
     Indication: UTERINE ATONY
     Dates: start: 20061219, end: 20061221
  7. AMOXICILLIN [Concomitant]
     Indication: POSTPARTUM STATE
     Dates: start: 20061219, end: 20061225

REACTIONS (1)
  - NEUTROPENIA [None]
